FAERS Safety Report 4602981-X (Version None)
Quarter: 2005Q1

REPORT INFORMATION
  Report Type: 
  Country: None (occurrence: None)
  Receive Date: 20050307
  Receipt Date: 20050221
  Transmission Date: 20050727
  Serious: Yes (Hospitalization)
  Sender: FDA-Public Use
  Company Number: 2005035005

PATIENT
  Age: 78 Year
  Sex: Male
  Weight: 72 kg

DRUGS (8)
  1. AMLODIPINE [Suspect]
     Indication: ESSENTIAL HYPERTENSION
     Dosage: (5 MG), ORAL
     Route: 048
  2. WARFARIN SODIUM [Suspect]
     Indication: PULMONARY HYPERTENSION
     Dosage: ORAL
     Route: 048
  3. PRISTINAMYCIN (PRISTINAMYCIN) [Suspect]
     Indication: OEDEMA PERIPHERAL
     Dosage: ORAL
     Route: 048
     Dates: start: 20041109, end: 20041124
  4. DARBEPOETIN ALFA (DARBEPOETIN  ALFA) [Suspect]
     Indication: RENAL FAILURE
     Dosage: 80 MCG (1 IN 1 WK), SUBCUTANEOUS
     Route: 058
  5. BOSENTAN (BOSENTAN) [Suspect]
     Indication: ESSENTIAL HYPERTENSION
     Dosage: 250 MG (125 MG, 2 IN 1 D), ORAL
     Route: 048
     Dates: start: 20030101
  6. FUROSEMIDE [Concomitant]
  7. FERROUS SULFATE TAB [Concomitant]
  8. INSULIN GLARGINE (INSULIN GLARGINE) [Concomitant]

REACTIONS (8)
  - ACUTE PULMONARY OEDEMA [None]
  - ANAEMIA [None]
  - CONDITION AGGRAVATED [None]
  - FLUID RETENTION [None]
  - GENERALISED OEDEMA [None]
  - HAEMODIALYSIS [None]
  - RENAL FAILURE ACUTE [None]
  - WEIGHT INCREASED [None]
